FAERS Safety Report 8886458 (Version 1)
Quarter: 2012Q4

REPORT INFORMATION
  Report Type: Report from Study
  Country: DE (occurrence: DE)
  Receive Date: 20121105
  Receipt Date: 20121105
  Transmission Date: 20130627
  Serious: Yes (Other)
  Sender: FDA-Public Use
  Company Number: DE-VIIV HEALTHCARE LIMITED-B0841937A

PATIENT
  Age: 48 Year
  Sex: Male

DRUGS (1)
  1. KIVEXA [Suspect]
     Indication: HIV INFECTION
     Dosage: 300MG Per day
     Route: 065

REACTIONS (2)
  - Myocardial infarction [Unknown]
  - Treatment noncompliance [Unknown]
